FAERS Safety Report 7081082-8 (Version None)
Quarter: 2010Q4

REPORT INFORMATION
  Report Type: 
  Country: None (occurrence: None)
  Receive Date: 20101103
  Receipt Date: 20101027
  Transmission Date: 20110411
  Serious: Yes (Other)
  Sender: FDA-Public Use
  Company Number: US-ROCHE-735879

PATIENT
  Sex: Male
  Weight: 63.5 kg

DRUGS (1)
  1. AVASTIN [Suspect]
     Indication: MACULAR DEGENERATION
     Dosage: DOSE: 1.25MG/0.05 ML, FREQUENCY:  ONCE, ONE TIME DOSE.
     Route: 031
     Dates: start: 20100722

REACTIONS (3)
  - PRODUCT QUALITY ISSUE [None]
  - VISION BLURRED [None]
  - VITREOUS FLOATERS [None]
